FAERS Safety Report 13913711 (Version 1)
Quarter: 2017Q3

REPORT INFORMATION
  Report Type: Spontaneous
  Country: CA (occurrence: CA)
  Receive Date: 20170829
  Receipt Date: 20170829
  Transmission Date: 20171127
  Serious: Yes (Other)
  Sender: FDA-Public Use
  Company Number: CA-MYLANLABS-2017M1052493

PATIENT

DRUGS (2)
  1. MYLAN-OMEPRAZOLE [Suspect]
     Active Substance: OMEPRAZOLE
     Indication: PRODUCT USED FOR UNKNOWN INDICATION
     Dosage: 20 MG, UNK
  2. OMEPRAZOLE TEVA                    /00661201/ [Suspect]
     Active Substance: OMEPRAZOLE
     Indication: PRODUCT USED FOR UNKNOWN INDICATION
     Dosage: 20 MG, UNK
     Route: 048

REACTIONS (6)
  - Malaise [Recovered/Resolved]
  - Diarrhoea [Recovered/Resolved]
  - Neurological symptom [Recovered/Resolved]
  - Coeliac disease [Recovered/Resolved]
  - Abdominal pain upper [Recovered/Resolved]
  - Gait disturbance [Recovered/Resolved]
